FAERS Safety Report 5067570-4 (Version None)
Quarter: 2006Q3

REPORT INFORMATION
  Report Type: 
  Country: None (occurrence: None)
  Receive Date: 20060718
  Receipt Date: 20060110
  Transmission Date: 20061208
  Serious: No
  Sender: FDA-Public Use
  Company Number: APP200600010

PATIENT
  Age: 91 Year
  Sex: Male

DRUGS (1)
  1. PAMIDRONATE DISODIUM [Suspect]
     Indication: MULTIPLE MYELOMA
     Dosage: 3.2143 MG (90 MG,1 IN 4 WK), INJECTION
     Route: 042
     Dates: start: 19980104, end: 20050628

REACTIONS (1)
  - OSTEONECROSIS [None]
